FAERS Safety Report 26119163 (Version 1)
Quarter: 2025Q4

REPORT INFORMATION
  Report Type: Spontaneous
  Country: CH (occurrence: CH)
  Receive Date: 20251204
  Receipt Date: 20251204
  Transmission Date: 20260117
  Serious: Yes (Life-Threatening, Hospitalization, Other)
  Sender: CELLTRION
  Company Number: CH-IQONE_HEALTHCARE_SWITZERLAND_1101001-2025CH043069

PATIENT

DRUGS (20)
  1. TRUXIMA [Suspect]
     Active Substance: RITUXIMAB-ABBS
     Indication: Product used for unknown indication
     Dosage: UNK
     Dates: start: 202012
  2. TRUXIMA [Suspect]
     Active Substance: RITUXIMAB-ABBS
     Dosage: 350 MG
     Route: 040
     Dates: start: 20250623, end: 20250623
  3. CYCLOSPORINE [Suspect]
     Active Substance: CYCLOSPORINE
     Indication: Alloimmunisation
     Dosage: 2.5 MG/KG, ONCE DAILY
     Route: 048
     Dates: start: 20250911
  4. CYCLOSPORINE [Suspect]
     Active Substance: CYCLOSPORINE
     Dosage: 67.5 MG TWICE DAILY (LAST LEVEL 206 ?G/L ON 06.10)
     Route: 048
     Dates: start: 20250911, end: 20251008
  5. RITUXIMAB [Suspect]
     Active Substance: RITUXIMAB
     Indication: Product used for unknown indication
     Dosage: 375 MG/M2 (330 MG) (4 WEEKLY DOSES/4); 4 DOSES TOTAL (07.02.024 / 15.02.2024 / 21.02.2024 / 28.02.20
     Route: 040
     Dates: start: 20240207, end: 20240228
  6. DARZALEX [Suspect]
     Active Substance: DARATUMUMAB
     Indication: Transfusion reaction
     Dosage: 436 MG (16 MG/KG/DAY) ONCE WEEKLY
     Route: 040
     Dates: start: 20250929
  7. DARZALEX [Suspect]
     Active Substance: DARATUMUMAB
     Dosage: 436 MG (16 MG/KG/DAY) ONCE WEEKLY
     Route: 040
     Dates: start: 20251006
  8. DARZALEX [Suspect]
     Active Substance: DARATUMUMAB
     Dosage: 436 MG (16 MG/KG/DAY) ONCE WEEKLY
     Route: 040
     Dates: start: 20251019
  9. PRIVIGEN [Suspect]
     Active Substance: HUMAN IMMUNOGLOBULIN G
     Indication: Transfusion reaction
     Dosage: 15 G
     Route: 040
     Dates: start: 20200901
  10. PRIVIGEN [Suspect]
     Active Substance: HUMAN IMMUNOGLOBULIN G
     Dosage: 17 G
     Route: 040
     Dates: start: 20200923
  11. PRIVIGEN [Suspect]
     Active Substance: HUMAN IMMUNOGLOBULIN G
     Dosage: 25 G
     Route: 040
     Dates: start: 20250624
  12. PRIVIGEN [Suspect]
     Active Substance: HUMAN IMMUNOGLOBULIN G
     Dosage: 27.4 G
     Route: 040
     Dates: start: 20250808
  13. PRIVIGEN [Suspect]
     Active Substance: HUMAN IMMUNOGLOBULIN G
     Dosage: 27 G
     Route: 040
     Dates: start: 20250819
  14. PRIVIGEN [Suspect]
     Active Substance: HUMAN IMMUNOGLOBULIN G
     Dosage: 25 G
     Route: 040
     Dates: start: 20250906
  15. PRIVIGEN [Suspect]
     Active Substance: HUMAN IMMUNOGLOBULIN G
     Dosage: 13.5 G
     Route: 040
     Dates: start: 20250910
  16. PRIVIGEN [Suspect]
     Active Substance: HUMAN IMMUNOGLOBULIN G
     Dosage: 13.5 G
     Route: 040
     Dates: start: 20250917
  17. PRIVIGEN [Suspect]
     Active Substance: HUMAN IMMUNOGLOBULIN G
     Dosage: 13.5 G
     Route: 040
     Dates: start: 20250921
  18. PRIVIGEN [Suspect]
     Active Substance: HUMAN IMMUNOGLOBULIN G
     Dosage: 36 G
     Route: 040
     Dates: start: 20250924
  19. PRIVIGEN [Suspect]
     Active Substance: HUMAN IMMUNOGLOBULIN G
     Dosage: 30 G
     Route: 040
     Dates: start: 20251007
  20. MYCOPHENOLATE MOFETIL [Suspect]
     Active Substance: MYCOPHENOLATE MOFETIL
     Indication: Immunosuppression
     Dosage: 500 MG, TWICE DAILY
     Route: 048
     Dates: start: 20250625, end: 202510

REACTIONS (1)
  - Posterior reversible encephalopathy syndrome [Recovering/Resolving]

NARRATIVE: CASE EVENT DATE: 20251008
